FAERS Safety Report 14401732 (Version 1)
Quarter: 2018Q1

REPORT INFORMATION
  Report Type: Spontaneous
  Country: GB (occurrence: GB)
  Receive Date: 20180117
  Receipt Date: 20180117
  Transmission Date: 20180509
  Serious: Yes (Hospitalization)
  Sender: FDA-Public Use
  Company Number: GB-TEVA-2018-GB-844616

PATIENT
  Age: 65 Year
  Sex: Female

DRUGS (14)
  1. ALFACALCIDOL [Concomitant]
     Active Substance: ALFACALCIDOL
  2. BISOPROLOL [Concomitant]
     Active Substance: BISOPROLOL
  3. RANITIDINE. [Concomitant]
     Active Substance: RANITIDINE
  4. HYDROCORTISONE. [Concomitant]
     Active Substance: HYDROCORTISONE
  5. FOLIC ACID. [Concomitant]
     Active Substance: FOLIC ACID
  6. SOLIFENACIN [Concomitant]
     Active Substance: SOLIFENACIN
  7. FLUDROCORTISONE [Concomitant]
     Active Substance: FLUDROCORTISONE
  8. FENOFIBRATE MICRONISED [Concomitant]
  9. SODIUM VALPROATE [Suspect]
     Active Substance: VALPROATE SODIUM
     Indication: EPILEPSY
     Route: 048
  10. ALENDRONIC ACID [Concomitant]
     Active Substance: ALENDRONIC ACID
  11. LOPERAMIDE [Concomitant]
     Active Substance: LOPERAMIDE
  12. PARACETAMOL [Concomitant]
     Active Substance: ACETAMINOPHEN
     Route: 065
  13. AMILORIDE [Concomitant]
     Active Substance: AMILORIDE
  14. SODIUM CHLORIDE. [Concomitant]
     Active Substance: SODIUM CHLORIDE

REACTIONS (2)
  - Seizure [Recovering/Resolving]
  - Product substitution issue [Unknown]
